FAERS Safety Report 7058328-5 (Version None)
Quarter: 2010Q4

REPORT INFORMATION
  Report Type: 
  Country: None (occurrence: None)
  Receive Date: 20101022
  Receipt Date: 20101012
  Transmission Date: 20110411
  Serious: No
  Sender: FDA-Public Use
  Company Number: US-PFIZER INC-2010130274

PATIENT
  Sex: Male
  Weight: 86.168 kg

DRUGS (9)
  1. VIAGRA [Suspect]
     Indication: ERECTILE DYSFUNCTION
     Dosage: 100 MG, AS NEEDED
     Route: 048
     Dates: start: 20090101
  2. FENOFIBRATE [Concomitant]
     Indication: BLOOD CHOLESTEROL INCREASED
     Dosage: 200 MG, DAILY
     Route: 048
     Dates: start: 20100801
  3. FENOFIBRATE [Concomitant]
     Dosage: 130 MG, DAILY
  4. GLYBURIDE AND METFORMIN HYDROCHLORIDE [Concomitant]
     Indication: DIABETES MELLITUS
     Dosage: 1000 MG, 2X/DAY
     Route: 048
     Dates: start: 20100101
  5. GLYBURIDE AND METFORMIN HYDROCHLORIDE [Concomitant]
     Dosage: 500 MG, 2X/DAY
  6. TESTOSTERONE [Concomitant]
     Dosage: 1 %, DAILY
  7. INSULIN [Concomitant]
     Indication: DIABETES MELLITUS
     Dosage: 25 IU, 1X/DAY
  8. AVALIDE [Concomitant]
     Indication: LIVER DISORDER
     Dosage: 150/12.5 MG, DAILY
     Route: 048
  9. AVALIDE [Concomitant]
     Indication: RENAL DISORDER

REACTIONS (2)
  - DRUG INEFFECTIVE [None]
  - INTENTIONAL OVERDOSE [None]
